FAERS Safety Report 21607704 (Version 3)
Quarter: 2022Q4

REPORT INFORMATION
  Report Type: Report from Study
  Country: BR (occurrence: BR)
  Receive Date: 20221117
  Receipt Date: 20221123
  Transmission Date: 20230113
  Serious: Yes (Death, Hospitalization)
  Sender: FDA-Public Use
  Company Number: BR-ABBVIE-4203867

PATIENT
  Sex: Male

DRUGS (1)
  1. HUMIRA [Suspect]
     Active Substance: ADALIMUMAB
     Indication: Rheumatoid arthritis
     Dosage: FORM STRENGTH 40 MG?FIST ADMIN DATE: 12; JAN 2022
     Route: 058

REACTIONS (2)
  - Respiratory disorder [Fatal]
  - Malaise [Unknown]

NARRATIVE: CASE EVENT DATE: 20220101
